FAERS Safety Report 17584541 (Version 15)
Quarter: 2024Q2

REPORT INFORMATION
  Report Type: Spontaneous
  Country: US (occurrence: US)
  Receive Date: 20200326
  Receipt Date: 20240510
  Transmission Date: 20240715
  Serious: Yes (Other)
  Sender: FDA-Public Use
  Company Number: US-PFIZER INC-2020124951

PATIENT
  Age: 84 Year
  Sex: Female
  Weight: 52.154 kg

DRUGS (7)
  1. XELJANZ XR [Suspect]
     Active Substance: TOFACITINIB CITRATE
     Dosage: 11 MG, DAILY
     Route: 048
  2. XELJANZ XR [Suspect]
     Active Substance: TOFACITINIB CITRATE
     Dosage: 11 MG, 1X/DAY
     Route: 048
  3. XELJANZ XR [Suspect]
     Active Substance: TOFACITINIB CITRATE
     Dosage: 11 MG, 1X/DAY
     Route: 048
  4. LEVOTHYROXINE [Concomitant]
     Active Substance: LEVOTHYROXINE\LEVOTHYROXINE SODIUM
     Dosage: 50
  5. LOSARTAN [Concomitant]
     Active Substance: LOSARTAN
     Dosage: 100 MG
     Dates: start: 2023
  6. TIMOLOL [Concomitant]
     Active Substance: TIMOLOL
     Dosage: UNK
  7. METOPROLOL [Concomitant]
     Active Substance: METOPROLOL
     Dosage: 25 MG

REACTIONS (5)
  - Rheumatoid arthritis [Unknown]
  - Hypoacusis [Unknown]
  - Pain in extremity [Unknown]
  - Blood pressure abnormal [Unknown]
  - Peripheral swelling [Unknown]
